FAERS Safety Report 17157209 (Version 2)
Quarter: 2019Q4

REPORT INFORMATION
  Report Type: Spontaneous
  Country: IT (occurrence: IT)
  Receive Date: 20191216
  Receipt Date: 20191218
  Transmission Date: 20200122
  Serious: Yes (Disabling)
  Sender: FDA-Public Use
  Company Number: IT-009507513-1912ITA007001

PATIENT
  Age: 27 Year
  Sex: Female
  Weight: 48 kg

DRUGS (3)
  1. PROTOPIC [Suspect]
     Active Substance: TACROLIMUS
  2. FUCICORT [Suspect]
     Active Substance: BETAMETHASONE VALERATE\FUSIDIC ACID
  3. ELOCON [Suspect]
     Active Substance: MOMETASONE FUROATE
     Dosage: UNK

REACTIONS (7)
  - Oedema [Not Recovered/Not Resolved]
  - Withdrawal syndrome [Not Recovered/Not Resolved]
  - Lymphadenopathy [Not Recovered/Not Resolved]
  - Alopecia [Not Recovered/Not Resolved]
  - Skin burning sensation [Not Recovered/Not Resolved]
  - Insomnia [Not Recovered/Not Resolved]
  - Urticaria [Not Recovered/Not Resolved]

NARRATIVE: CASE EVENT DATE: 20190701
